FAERS Safety Report 6399187-3 (Version None)
Quarter: 2009Q4

REPORT INFORMATION
  Report Type: 
  Country: None (occurrence: None)
  Receive Date: 20091008
  Receipt Date: 20091005
  Transmission Date: 20100525
  Serious: Yes (Hospitalization, Other)
  Sender: FDA-Public Use
  Company Number: 09GB004137

PATIENT
  Age: 70 Year
  Sex: Female
  Weight: 85 kg

DRUGS (7)
  1. IBUPROFEN [Suspect]
     Indication: ARTHRALGIA
     Dosage: 400 MG, ORAL
     Route: 048
     Dates: start: 20090820, end: 20090825
  2. BENZYLPENICILLIN (BENZYLPENICILLIN CALCIUM) [Concomitant]
  3. FLUCLOXACILLIN (FLUCLOXACILLIN SODIUM) [Concomitant]
  4. LANSOPRAZOLE [Concomitant]
  5. SPIRIVA [Concomitant]
  6. THEOPHYLLINE [Concomitant]
  7. WARFARIN SODIUM [Concomitant]

REACTIONS (4)
  - IMMUNE SYSTEM DISORDER [None]
  - INTERNATIONAL NORMALISED RATIO INCREASED [None]
  - PANCYTOPENIA [None]
  - RENAL FAILURE ACUTE [None]
